FAERS Safety Report 22250325 (Version 2)
Quarter: 2023Q2

REPORT INFORMATION
  Report Type: Spontaneous
  Country: CH (occurrence: CH)
  Receive Date: 20230425
  Receipt Date: 20230502
  Transmission Date: 20230722
  Serious: Yes (Other)
  Sender: FDA-Public Use
  Company Number: CH-BAYER-2023A052195

PATIENT
  Age: 82 Year

DRUGS (5)
  1. RIVAROXABAN [Suspect]
     Active Substance: RIVAROXABAN
     Indication: Product used for unknown indication
     Route: 048
  2. ASPIRIN [Suspect]
     Active Substance: ASPIRIN
     Indication: Product used for unknown indication
     Route: 065
  3. PHENPROCOUMON [Concomitant]
     Active Substance: PHENPROCOUMON
  4. STROPHANTIN [Concomitant]
  5. BROMAZEPAM [Concomitant]
     Active Substance: BROMAZEPAM

REACTIONS (2)
  - Blindness [Unknown]
  - Eye degenerative disorder [Unknown]
